FAERS Safety Report 4865602-7 (Version None)
Quarter: 2005Q4

REPORT INFORMATION
  Report Type: 
  Country: None (occurrence: None)
  Receive Date: 20051220
  Receipt Date: 20051212
  Transmission Date: 20060501
  Serious: Yes (Death)
  Sender: FDA-Public Use
  Company Number: 2005-US-01420

PATIENT
  Age: 53 Year
  Sex: Male

DRUGS (1)
  1. CLOZAPINE [Suspect]
     Indication: SCHIZOPHRENIA
     Dosage: 350 MG, QD, ORAL
     Route: 048
     Dates: start: 20011201, end: 20051101

REACTIONS (1)
  - DEATH [None]
